FAERS Safety Report 6409963-6 (Version None)
Quarter: 2009Q4

REPORT INFORMATION
  Report Type: 
  Country: None (occurrence: None)
  Receive Date: 20091020
  Receipt Date: 20091020
  Transmission Date: 20100525
  Serious: Yes (Life-Threatening, Disabling, Other)
  Sender: FDA-Public Use
  Company Number: None

PATIENT
  Sex: Female
  Weight: 124.7392 kg

DRUGS (4)
  1. RISPERIDONE [Suspect]
     Indication: CONVULSION
     Dosage: 6MG 2 XDAY
  2. LITHIUM CR 450 MG X 2 DAY [Suspect]
     Indication: ATTENTION DEFICIT/HYPERACTIVITY DISORDER
     Dosage: 450MG 2XDAY
  3. LITHIUM CR 450 MG X 2 DAY [Suspect]
     Indication: BIPOLAR DISORDER
     Dosage: 450MG 2XDAY
  4. LITHIUM CR 450 MG X 2 DAY [Suspect]
     Indication: MENTAL RETARDATION
     Dosage: 450MG 2XDAY

REACTIONS (2)
  - AGITATION [None]
  - COGNITIVE DISORDER [None]
